FAERS Safety Report 21190372 (Version 2)
Quarter: 2022Q3

REPORT INFORMATION
  Report Type: Spontaneous
  Country: AU (occurrence: AU)
  Receive Date: 20220809
  Receipt Date: 20220824
  Transmission Date: 20221027
  Serious: Yes (Hospitalization)
  Sender: FDA-Public Use
  Company Number: AU-SA-SAC20220804002040

PATIENT
  Sex: Male

DRUGS (1)
  1. LIBTAYO [Suspect]
     Active Substance: CEMIPLIMAB-RWLC
     Indication: Squamous cell carcinoma of skin
     Dosage: 350 MG, QOW
     Route: 042
     Dates: start: 20210624

REACTIONS (3)
  - Infection [Unknown]
  - Pyrexia [Unknown]
  - Malaise [Unknown]
